FAERS Safety Report 17066504 (Version 1)
Quarter: 2019Q4

REPORT INFORMATION
  Report Type: Spontaneous
  Country: US (occurrence: US)
  Receive Date: 20191122
  Receipt Date: 20191122
  Transmission Date: 20200122
  Serious: Yes (Other)
  Sender: FDA-Public Use
  Company Number: US-MYLANLABS-2019M1113017

PATIENT
  Sex: Female
  Weight: 51 kg

DRUGS (1)
  1. FENTANYL TRANSDERMAL SYSTEM [Suspect]
     Active Substance: FENTANYL
     Indication: CANCER PAIN
     Dosage: UNK UNK, Q2D
     Route: 062

REACTIONS (11)
  - Neuropathy peripheral [Not Recovered/Not Resolved]
  - Withdrawal syndrome [Not Recovered/Not Resolved]
  - Insomnia [Not Recovered/Not Resolved]
  - Retching [Recovered/Resolved]
  - Eating disorder [Recovered/Resolved]
  - Yawning [Recovered/Resolved]
  - Hyperhidrosis [Recovered/Resolved]
  - Product adhesion issue [Recovered/Resolved]
  - Pain [Not Recovered/Not Resolved]
  - Dyskinesia [Recovered/Resolved]
  - Therapeutic product effect decreased [Not Recovered/Not Resolved]
